FAERS Safety Report 13876702 (Version 2)
Quarter: 2017Q4

REPORT INFORMATION
  Report Type: Spontaneous
  Country: US (occurrence: US)
  Receive Date: 20170817
  Receipt Date: 20171102
  Transmission Date: 20180320
  Serious: No
  Sender: FDA-Public Use
  Company Number: US-CELGENEUS-USA-20170803367

PATIENT
  Age: 64 Year
  Sex: Female

DRUGS (5)
  1. CALCITRENE [Concomitant]
     Active Substance: CALCIPOTRIENE
     Indication: PSORIASIS
     Route: 065
     Dates: start: 20150320
  2. TRIAMCINOLONE [Concomitant]
     Active Substance: TRIAMCINOLONE
     Indication: PSORIASIS
     Dosage: 0.1 PERCENT
     Route: 065
     Dates: start: 20160105
  3. FOLIC ACID. [Concomitant]
     Active Substance: FOLIC ACID
     Indication: PSORIASIS
     Dosage: 1 MILLIGRAM
     Route: 065
  4. OTEZLA [Suspect]
     Active Substance: APREMILAST
     Indication: PSORIASIS
     Dosage: 60 MILLIGRAM
     Route: 048
     Dates: start: 20150206
  5. METHOTREXATE. [Concomitant]
     Active Substance: METHOTREXATE
     Indication: PSORIASIS
     Dosage: 15 MILLIGRAM
     Route: 065
     Dates: start: 20161007

REACTIONS (2)
  - Dyspepsia [Recovered/Resolved]
  - Hyperhidrosis [Recovered/Resolved]

NARRATIVE: CASE EVENT DATE: 20170808
